FAERS Safety Report 6771549-1 (Version None)
Quarter: 2010Q2

REPORT INFORMATION
  Report Type: 
  Country: None (occurrence: None)
  Receive Date: 20100616
  Receipt Date: 20100608
  Transmission Date: 20101027
  Serious: Yes (Disabling)
  Sender: FDA-Public Use
  Company Number: CA-ROCHE-708224

PATIENT
  Sex: Female
  Weight: 58 kg

DRUGS (5)
  1. BEVACIZUMAB [Suspect]
     Indication: BREAST CANCER
     Dosage: TOTAL DOSE: 900 MG, FORM: VIALS,DATE OF LAST DOSE PRIOR SAE: 10 MAY 2010, PERMANENTLY DISCONTINUED.
     Route: 042
     Dates: start: 20100419
  2. TRASTUZUMAB [Suspect]
     Indication: BREAST CANCER
     Dosage: LOADING DOSE.
     Route: 042
     Dates: start: 20100419
  3. TRASTUZUMAB [Suspect]
     Dosage: TOTAL DOSE: 360 MG, FORM: VIALS, DATE OF LAST DOSE PRIOR TO SAE: 10 MAY 2010, MAINTENANCE DOSE
     Route: 042
     Dates: start: 20100503
  4. DOCETAXEL [Suspect]
     Indication: BREAST CANCER
     Dosage: TOTAL DOSE: 120 MG, FORM: VIALS, DATE OF LAST DOSE PRIOR SAE: 10 MAY 2010, PERMANENTLY DISCONTINUED.
     Route: 042
     Dates: start: 20100419
  5. CARBOPLATIN [Suspect]
     Indication: BREAST CANCER
     Dosage: DOSE LEVEL:6 AUC,TOTAL DOSE:530 MG,VIALS, LAST DOSE PRIOR SAE: 10 MAY 2010, PERMANENTLY DISCONTINUED
     Route: 042
     Dates: start: 20100419

REACTIONS (2)
  - NEUROPATHY PERIPHERAL [None]
  - SKIN EXFOLIATION [None]
